FAERS Safety Report 9027693 (Version 1)
Quarter: 2013Q1

REPORT INFORMATION
  Report Type: Spontaneous
  Country: GB (occurrence: GB)
  Receive Date: 20130124
  Receipt Date: 20130124
  Transmission Date: 20140127
  Serious: Yes (Other)
  Sender: FDA-Public Use
  Company Number: GB-RANBAXY-2013R1-64335

PATIENT
  Age: 16 Year
  Sex: Female
  Weight: 75.5 kg

DRUGS (6)
  1. RISPERIDONE [Suspect]
     Indication: ANXIETY
     Dosage: UNK
     Route: 048
     Dates: start: 2008, end: 2012
  2. RISPERIDONE [Suspect]
     Indication: AGGRESSION
  3. ABILIFY [Suspect]
     Indication: ANXIETY
     Dosage: UNK
     Route: 048
     Dates: start: 2011, end: 2012
  4. ABILIFY [Suspect]
     Indication: AGGRESSION
  5. BIO-MELATONIN [Concomitant]
     Indication: INSOMNIA
     Dosage: UNK
     Route: 048
     Dates: end: 201210
  6. FLUOXETINE [Concomitant]
     Indication: ANXIETY
     Dosage: UNK
     Route: 048
     Dates: start: 2011, end: 201201

REACTIONS (3)
  - Dystonia [Recovered/Resolved]
  - Muscle twitching [Recovered/Resolved]
  - Withdrawal syndrome [Unknown]
